FAERS Safety Report 6826099-0 (Version None)
Quarter: 2010Q3

REPORT INFORMATION
  Report Type: 
  Country: None (occurrence: None)
  Receive Date: 20100709
  Receipt Date: 20100330
  Transmission Date: 20110219
  Serious: Yes (Other)
  Sender: FDA-Public Use
  Company Number: US-ASTRAZENECA-2006UW11256

PATIENT
  Age: 35 Year
  Sex: Male
  Weight: 117 kg

DRUGS (13)
  1. SEROQUEL [Suspect]
     Indication: DEPRESSION
     Dosage: 600 MG, 900 MG
     Route: 048
     Dates: start: 19980601, end: 20070501
  2. SEROQUEL [Suspect]
     Indication: ANXIETY
     Dosage: 600 MG, 900 MG
     Route: 048
     Dates: start: 19980601, end: 20070501
  3. SEROQUEL [Suspect]
     Indication: BIPOLAR DISORDER
     Dosage: 600 MG, 900 MG
     Route: 048
     Dates: start: 19980601, end: 20070501
  4. SEROQUEL [Suspect]
     Indication: SCHIZOPHRENIA
     Dosage: 600 MG, 900 MG
     Route: 048
     Dates: start: 19980601, end: 20070501
  5. SEROQUEL [Suspect]
     Dosage: 200 MG IN MORNING AND AT NIGHT
     Route: 048
     Dates: start: 20030115
  6. SEROQUEL [Suspect]
     Dosage: 200 MG IN MORNING AND AT NIGHT
     Route: 048
     Dates: start: 20030115
  7. SEROQUEL [Suspect]
     Dosage: 200 MG IN MORNING AND AT NIGHT
     Route: 048
     Dates: start: 20030115
  8. SEROQUEL [Suspect]
     Dosage: 200 MG IN MORNING AND AT NIGHT
     Route: 048
     Dates: start: 20030115
  9. ZYPREXA [Concomitant]
     Dates: start: 19990101
  10. ABILIFY [Concomitant]
     Dates: start: 20050101
  11. GEODON [Concomitant]
     Dates: start: 19980101
  12. RISPERDAL [Concomitant]
     Dates: start: 19980101
  13. DEPAKOTE [Concomitant]
     Route: 048
     Dates: start: 20030115

REACTIONS (10)
  - CARDIAC DISORDER [None]
  - DIABETIC GASTROPARESIS [None]
  - DIABETIC NEPHROPATHY [None]
  - NEUROPATHY PERIPHERAL [None]
  - POLYP [None]
  - RENAL ARTERY STENOSIS [None]
  - RENAL DISORDER [None]
  - RENAL FAILURE [None]
  - TYPE 1 DIABETES MELLITUS [None]
  - TYPE 2 DIABETES MELLITUS [None]
